FAERS Safety Report 4887806-X (Version None)
Quarter: 2006Q1

REPORT INFORMATION
  Report Type: 
  Country: None (occurrence: None)
  Receive Date: 20060123
  Receipt Date: 20050107
  Transmission Date: 20060701
  Serious: Yes (Hospitalization, Disabling)
  Sender: FDA-Public Use
  Company Number: US-MERCK-0501USA01887

PATIENT
  Age: 30 Year
  Sex: Female
  Weight: 47 kg

DRUGS (5)
  1. TYLENOL (CAPLET) [Concomitant]
     Route: 065
  2. VIOXX [Suspect]
     Indication: INFLAMMATION
     Route: 048
     Dates: start: 20000101, end: 20030101
  3. VIOXX [Suspect]
     Indication: ARTHRALGIA
     Route: 048
     Dates: start: 19990101
  4. VIOXX [Suspect]
     Route: 048
     Dates: start: 20000101, end: 20030101
  5. VIOXX [Suspect]
     Route: 048
     Dates: start: 19990101

REACTIONS (13)
  - ARTERIOSCLEROSIS [None]
  - ARTHRITIS INFECTIVE [None]
  - CARDIAC DISORDER [None]
  - CHEST PAIN [None]
  - DEHYDRATION [None]
  - DYSPNOEA [None]
  - HEAD INJURY [None]
  - LIMB INJURY [None]
  - PULMONARY MASS [None]
  - SYNOVIAL CYST [None]
  - THROMBOSIS [None]
  - UTERINE DISORDER [None]
  - WEIGHT DECREASED [None]
